FAERS Safety Report 10682736 (Version 1)
Quarter: 2014Q4

REPORT INFORMATION
  Report Type: Spontaneous
  Country: US (occurrence: None)
  Receive Date: 20141217
  Receipt Date: 20141217
  Transmission Date: 20150529
  Serious: Yes (Hospitalization, Other)
  Sender: FDA-Public Use
  Company Number: TPA2010A05696

PATIENT
  Age: 45 Year
  Sex: Female
  Weight: 76.2 kg

DRUGS (3)
  1. OMNICEF (CEFDINIR) [Concomitant]
  2. IBUPROFEN (IBUPROFEN) [Concomitant]
     Active Substance: IBUPROFEN
  3. DEXILANT [Suspect]
     Active Substance: DEXLANSOPRAZOLE
     Indication: GASTROOESOPHAGEAL REFLUX DISEASE
     Dosage: 60 MG, 1 IN 1 D, PER ORAL
     Route: 048
     Dates: start: 20101028, end: 20101031

REACTIONS (9)
  - Urticaria [None]
  - Hypersensitivity [None]
  - Lip swelling [None]
  - Tachycardia [None]
  - Throat tightness [None]
  - Pruritus [None]
  - Dyspnoea [None]
  - Chest pain [None]
  - Wheezing [None]

NARRATIVE: CASE EVENT DATE: 20101031
